FAERS Safety Report 5945844-X (Version None)
Quarter: 2008Q4

REPORT INFORMATION
  Report Type: 
  Country: None (occurrence: None)
  Receive Date: 20081106
  Receipt Date: 20081029
  Transmission Date: 20090506
  Serious: Yes (Other)
  Sender: FDA-Public Use
  Company Number: 2008BI021183

PATIENT
  Age: 29 Year
  Sex: Female
  Weight: 86.1834 kg

DRUGS (3)
  1. TYSABRI [Suspect]
     Indication: MULTIPLE SCLEROSIS
     Dosage: 300 MG; QM; IV
     Route: 042
     Dates: start: 20080522
  2. . [Concomitant]
  3. . [Concomitant]

REACTIONS (6)
  - CEREBRAL HAEMORRHAGE [None]
  - DEMYELINATION [None]
  - FACE OEDEMA [None]
  - HEADACHE [None]
  - LOCAL SWELLING [None]
  - SUBDURAL HAEMATOMA [None]
